FAERS Safety Report 5405676-8 (Version None)
Quarter: 2007Q3

REPORT INFORMATION
  Report Type: 
  Country: None (occurrence: None)
  Receive Date: 20070806
  Receipt Date: 20070727
  Transmission Date: 20080115
  Serious: Yes (Other)
  Sender: FDA-Public Use
  Company Number: PHBS2007JP10289

PATIENT
  Age: 77 Year
  Sex: Female
  Weight: 63 kg

DRUGS (4)
  1. ZOMETA [Suspect]
     Indication: MULTIPLE MYELOMA
     Dosage: 4 MG/MONTH
     Route: 042
     Dates: start: 20060602, end: 20070522
  2. AREDIA [Suspect]
     Indication: MULTIPLE MYELOMA
     Dosage: 30 MG/MONTH
     Route: 042
     Dates: start: 20020101, end: 20060502
  3. MELPHALAN [Concomitant]
     Indication: MULTIPLE MYELOMA
     Dosage: 8 MG/DAY
     Route: 048
     Dates: start: 20021201
  4. PREDONINE [Concomitant]
     Indication: MULTIPLE MYELOMA
     Dosage: 20 MG/DAY
     Route: 048
     Dates: start: 20021201

REACTIONS (4)
  - BONE DISORDER [None]
  - BONE SWELLING [None]
  - OSTEONECROSIS [None]
  - STOMATITIS [None]
